FAERS Safety Report 5327715-5 (Version None)
Quarter: 2007Q2

REPORT INFORMATION
  Report Type: 
  Country: None (occurrence: None)
  Receive Date: 20070514
  Receipt Date: 20070426
  Transmission Date: 20071010
  Serious: Yes (Congenital Anomaly, Other)
  Sender: FDA-Public Use
  Company Number: 2007US001009

PATIENT
  Age: 1 Day
  Sex: 0

DRUGS (11)
  1. PROGRAF [Suspect]
     Indication: DRUG EXPOSURE DURING PREGNANCY
  2. MYCOPHENOLATE MOFETIL [Suspect]
     Indication: DRUG EXPOSURE DURING PREGNANCY
     Dosage: 500 MG, BID
  3. SIROLIMUS(SIROLIMUS) [Suspect]
     Indication: DRUG EXPOSURE DURING PREGNANCY
  4. PREDNISONE TAB [Suspect]
     Indication: DRUG EXPOSURE DURING PREGNANCY
  5. LABETALOL HCL [Concomitant]
  6. OMEPRAZOLE [Concomitant]
  7. THYMOGLOBULIN [Concomitant]
  8. AZTREONAM (AZTREONAM) [Concomitant]
  9. CLINDAMYCIN HCL [Concomitant]
  10. GANCICLOVIR [Concomitant]
  11. ERYTHROPOIETIN (ERYTHROPOIETIN) [Concomitant]

REACTIONS (4)
  - CLEFT LIP AND PALATE [None]
  - DRUG EXPOSURE DURING PREGNANCY [None]
  - MICROTIA [None]
  - PREMATURE BABY [None]
